FAERS Safety Report 17368663 (Version 1)
Quarter: 2020Q1

REPORT INFORMATION
  Report Type: Spontaneous
  Country: US (occurrence: US)
  Receive Date: 20200204
  Receipt Date: 20200204
  Transmission Date: 20200409
  Serious: No
  Sender: FDA-Public Use
  Company Number: US-009507513-2002USA000494

PATIENT
  Sex: Female

DRUGS (2)
  1. DECADRON [Suspect]
     Active Substance: DEXAMETHASONE
     Dosage: UNK
     Dates: end: 201910
  2. JANUMET [Suspect]
     Active Substance: METFORMIN HYDROCHLORIDE\SITAGLIPTIN PHOSPHATE
     Route: 048

REACTIONS (4)
  - Blood glucose increased [Unknown]
  - Magnetic resonance imaging [Unknown]
  - Muscle atrophy [Unknown]
  - Eye disorder [Unknown]

NARRATIVE: CASE EVENT DATE: 2019
